FAERS Safety Report 4531346-4 (Version None)
Quarter: 2004Q4

REPORT INFORMATION
  Report Type: 
  Country: None (occurrence: None)
  Receive Date: 20041206
  Receipt Date: 20040927
  Transmission Date: 20050328
  Serious: No
  Sender: FDA-Public Use
  Company Number: USA040978314

PATIENT
  Age: 52 Year
  Sex: Female

DRUGS (1)
  1. CYMBALTA [Suspect]
     Indication: MAJOR DEPRESSION
     Dosage: 30 MG DAY
     Dates: start: 20040823, end: 20040908

REACTIONS (6)
  - AGITATION [None]
  - ANGER [None]
  - ANXIETY [None]
  - DIZZINESS [None]
  - PANIC REACTION [None]
  - RESTLESSNESS [None]
